FAERS Safety Report 7943160-8 (Version None)
Quarter: 2011Q4

REPORT INFORMATION
  Report Type: 
  Country: None (occurrence: None)
  Receive Date: 20111128
  Receipt Date: 20111118
  Transmission Date: 20120403
  Serious: Yes (Other)
  Sender: FDA-Public Use
  Company Number: PHHY2009BR49472

PATIENT
  Sex: Female

DRUGS (1)
  1. EXFORGE [Suspect]
     Dosage: 1 DF (320/10 MG), UNK

REACTIONS (2)
  - HYPERTENSION [None]
  - MATERNAL EXPOSURE DURING PREGNANCY [None]
